FAERS Safety Report 4579844-1 (Version None)
Quarter: 2005Q1

REPORT INFORMATION
  Report Type: 
  Country: None (occurrence: None)
  Receive Date: 20050210
  Receipt Date: 20050210
  Transmission Date: 20050727
  Serious: Yes (Life-Threatening)
  Sender: FDA-Public Use
  Company Number: None

PATIENT
  Age: 75 Year
  Sex: Female
  Weight: 61.2356 kg

DRUGS (2)
  1. MOBIC [Suspect]
     Indication: PAIN
     Dosage: 3 X A DAY   ORAL
     Route: 048
     Dates: start: 20040929, end: 20041224
  2. GABAPENTIN [Suspect]
     Indication: PAIN
     Dosage: 3X A DAY    ORAL
     Route: 048

REACTIONS (1)
  - HEPATIC CYST [None]
